FAERS Safety Report 10245631 (Version 1)
Quarter: 2014Q2

REPORT INFORMATION
  Report Type: Spontaneous
  Country: HR (occurrence: HR)
  Receive Date: 20140619
  Receipt Date: 20140619
  Transmission Date: 20141212
  Serious: Yes (Hospitalization)
  Sender: FDA-Public Use
  Company Number: HR-ROCHE-1417260

PATIENT
  Age: 33 Year
  Sex: Male
  Weight: 90 kg

DRUGS (2)
  1. CEFTRIAXONE [Suspect]
     Indication: BRAIN ABSCESS
     Dosage: 2G; 2G DVA PUTA DNEVO. A NAKON 4, 5TJEDNA 2 G JEDANPUT DNEVNO
     Route: 042
     Dates: start: 20140331, end: 20140512
  2. METRONIDAZOL [Suspect]
     Indication: BRAIN ABSCESS
     Dosage: 500 MG; 500 MG 4 X DNEVNO, A NAKON 4,5 TJEDANA 500 MG 3 X DNEVNO
     Route: 048
     Dates: start: 20140331, end: 20140512

REACTIONS (2)
  - Ageusia [Recovering/Resolving]
  - Pseudomembranous colitis [Recovering/Resolving]
